FAERS Safety Report 7742693-7 (Version None)
Quarter: 2011Q3

REPORT INFORMATION
  Report Type: 
  Country: None (occurrence: None)
  Receive Date: 20110909
  Receipt Date: 20110906
  Transmission Date: 20111222
  Serious: Yes (Hospitalization)
  Sender: FDA-Public Use
  Company Number: DL2011-0742

PATIENT
  Age: 29 Year
  Sex: Female

DRUGS (3)
  1. DOXYCYCLINE [Concomitant]
  2. MIFEPRISTONE (MIFEPREX) [Suspect]
     Indication: ABORTION INDUCED
     Dosage: 200 MG, ORAL
     Route: 048
     Dates: start: 20100623
  3. MISOPROSTOL [Suspect]
     Dosage: 800 MCG, BUCCAL
     Route: 002
     Dates: start: 20100624

REACTIONS (7)
  - ANAPHYLACTIC SHOCK [None]
  - HAEMORRHAGE [None]
  - SWELLING [None]
  - UTERINE INFECTION [None]
  - UTERINE CERVICAL PAIN [None]
  - MATERNAL EXPOSURE DURING PREGNANCY [None]
  - PAIN [None]
